FAERS Safety Report 7742759-1 (Version None)
Quarter: 2011Q3

REPORT INFORMATION
  Report Type: 
  Country: None (occurrence: None)
  Receive Date: 20110831
  Receipt Date: 20110831
  Transmission Date: 20111222
  Serious: No
  Sender: FDA-Public Use
  Company Number: None

PATIENT

DRUGS (1)
  1. GEMFIBROZIL [Suspect]

REACTIONS (3)
  - PRODUCT PACKAGING ISSUE [None]
  - PRODUCT IDENTIFICATION NUMBER ISSUE [None]
  - INTERCEPTED DRUG DISPENSING ERROR [None]
